FAERS Safety Report 9322677 (Version 4)
Quarter: 2014Q1

REPORT INFORMATION
  Report Type: Spontaneous
  Country: US (occurrence: US)
  Receive Date: 20130601
  Receipt Date: 20140226
  Transmission Date: 20141002
  Serious: Yes (Disabling, Other)
  Sender: FDA-Public Use
  Company Number: US-ASTRAZENECA-2013SE38577

PATIENT
  Age: 48 Year
  Sex: Female
  Weight: 69.9 kg

DRUGS (57)
  1. NEXIUM [Suspect]
     Indication: GASTROOESOPHAGEAL REFLUX DISEASE
     Route: 048
     Dates: start: 20030107, end: 20040916
  2. NEXIUM [Suspect]
     Indication: GASTROOESOPHAGEAL REFLUX DISEASE
     Route: 048
     Dates: start: 20030107, end: 20040916
  3. NEXIUM [Suspect]
     Indication: GASTROOESOPHAGEAL REFLUX DISEASE
     Route: 048
     Dates: start: 20040318
  4. NEXIUM [Suspect]
     Indication: GASTROOESOPHAGEAL REFLUX DISEASE
     Route: 048
     Dates: start: 20040318
  5. NEXIUM [Suspect]
     Indication: GASTROOESOPHAGEAL REFLUX DISEASE
     Route: 048
     Dates: start: 20040714
  6. NEXIUM [Suspect]
     Indication: GASTROOESOPHAGEAL REFLUX DISEASE
     Route: 048
     Dates: start: 20040714
  7. PRILOSEC [Suspect]
     Indication: GASTROOESOPHAGEAL REFLUX DISEASE
     Route: 048
     Dates: start: 19980505
  8. PRILOSEC [Suspect]
     Indication: GASTROOESOPHAGEAL REFLUX DISEASE
     Route: 048
     Dates: start: 19980505
  9. PRILOSEC [Suspect]
     Indication: GASTROOESOPHAGEAL REFLUX DISEASE
     Route: 048
     Dates: start: 19980505
  10. PRILOSEC [Suspect]
     Indication: GASTROOESOPHAGEAL REFLUX DISEASE
     Route: 048
     Dates: start: 19980505
  11. PRILOSEC [Suspect]
     Indication: GASTROOESOPHAGEAL REFLUX DISEASE
     Route: 048
     Dates: start: 1998
  12. PRILOSEC [Suspect]
     Indication: GASTROOESOPHAGEAL REFLUX DISEASE
     Route: 048
     Dates: start: 1998
  13. ACIPHEX [Concomitant]
  14. ACIPHEX [Concomitant]
     Dates: start: 1998
  15. PREVACID [Concomitant]
  16. PREVACID [Concomitant]
     Dates: start: 1998
  17. PROTONIX [Concomitant]
  18. PROTONIX [Concomitant]
     Dates: start: 1998
  19. ZANTAC [Concomitant]
     Indication: HIATUS HERNIA
     Dates: start: 201202
  20. ZANTAC [Concomitant]
     Indication: GASTROOESOPHAGEAL REFLUX DISEASE
     Dates: start: 201202
  21. ZANTAC [Concomitant]
     Indication: HIATUS HERNIA
     Dates: start: 201202
  22. ZANTAC [Concomitant]
     Indication: GASTROOESOPHAGEAL REFLUX DISEASE
     Dates: start: 201202
  23. MYLANTA [Concomitant]
     Indication: DYSPEPSIA
  24. GAVISCON [Concomitant]
     Indication: DYSPEPSIA
  25. TUMS [Concomitant]
     Dates: start: 201303
  26. PREMARIN [Concomitant]
  27. ZESTRIL [Concomitant]
  28. ZOCOR [Concomitant]
     Indication: HYPERLIPIDAEMIA
  29. RESTORIL [Concomitant]
  30. OXYCODONE [Concomitant]
  31. LASIX [Concomitant]
  32. ALDACTONE [Concomitant]
  33. XALATAN [Concomitant]
  34. NEURONTIN [Concomitant]
     Dosage: 2 TABLETS IN THE MORNING AND 2 IN THE EVENING
  35. COUMADIN [Concomitant]
     Dosage: 7.5 MG ALTERNATING WITH 10 MG.
  36. ASPIRIN [Concomitant]
     Dates: start: 200407
  37. SUCRALFATE [Concomitant]
     Dosage: 1 GRAM, 3 TIMES DAILY AND AT BEDTIME
  38. MAGNESIUM OXIDE [Concomitant]
  39. TOPROL XL [Concomitant]
     Route: 048
  40. TOPROL XL [Concomitant]
     Route: 048
     Dates: start: 200403
  41. TOPROL XL [Concomitant]
     Route: 048
     Dates: start: 200403
  42. FLEXERIL [Concomitant]
  43. AMIODARONE [Concomitant]
  44. PHENERGAN [Concomitant]
  45. METFORMIN [Concomitant]
  46. CALCIUM PLUS [Concomitant]
  47. COLACE [Concomitant]
  48. PAXIL [Concomitant]
     Indication: DEPRESSION
  49. GLYBURIDE [Concomitant]
     Dates: start: 200407
  50. IMDUR [Concomitant]
     Dates: start: 200407
  51. XENICAL [Concomitant]
     Dates: start: 20040929
  52. ZAROXOLYN [Concomitant]
     Route: 048
     Dates: start: 20080818
  53. ZETIA [Concomitant]
     Route: 048
     Dates: start: 20080818
  54. COZAAR [Concomitant]
  55. AMBIEN [Concomitant]
     Dates: start: 20060103
  56. CALCIUM + VITAMIN D [Concomitant]
     Indication: OSTEOPOROSIS
     Dosage: 500/200
  57. CYMBALTA [Concomitant]
     Dates: start: 20061031

REACTIONS (19)
  - Arrhythmia supraventricular [Unknown]
  - Femur fracture [Unknown]
  - Fall [Unknown]
  - Osteoporosis [Unknown]
  - Bone disorder [Unknown]
  - Carpal tunnel syndrome [Unknown]
  - Cubital tunnel syndrome [Unknown]
  - Angiopathy [Unknown]
  - Cataract [Unknown]
  - Lung disorder [Unknown]
  - Glaucoma [Unknown]
  - Chest pain [Unknown]
  - Procedural pain [Unknown]
  - Osteopenia [Unknown]
  - Lower limb fracture [Unknown]
  - Patellofemoral pain syndrome [Unknown]
  - Limb injury [Unknown]
  - Hypoaesthesia [Unknown]
  - Depression [Unknown]
